FAERS Safety Report 4699488-0 (Version None)
Quarter: 2005Q2

REPORT INFORMATION
  Report Type: 
  Country: None (occurrence: None)
  Receive Date: 20050622
  Receipt Date: 20050606
  Transmission Date: 20051028
  Serious: Yes (Other)
  Sender: FDA-Public Use
  Company Number: 2005EU001218

PATIENT
  Sex: 0

DRUGS (1)
  1. PROGRAF [Suspect]
     Indication: LIVER TRANSPLANT
     Dosage: UNK, UNKNOWN/D,UNK
     Route: 065

REACTIONS (2)
  - ARTERIOPATHIC DISEASE [None]
  - THROMBOTIC MICROANGIOPATHY [None]
